FAERS Safety Report 6526074-X (Version None)
Quarter: 2010Q1

REPORT INFORMATION
  Report Type: 
  Country: None (occurrence: None)
  Receive Date: 20100104
  Receipt Date: 20091221
  Transmission Date: 20100710
  Serious: Yes (Other)
  Sender: FDA-Public Use
  Company Number: GB-MYLANLABS-2009S1018476

PATIENT
  Age: 16 Year
  Sex: Male
  Weight: 70 kg

DRUGS (9)
  1. FLUOXETINE [Suspect]
     Indication: OBSESSIVE-COMPULSIVE DISORDER
     Route: 048
     Dates: start: 19980101, end: 20090101
  2. FLUOXETINE [Interacting]
     Indication: TOURETTE'S DISORDER
     Route: 048
     Dates: start: 19980101, end: 20090101
  3. FLUOXETINE [Interacting]
     Route: 048
     Dates: start: 20090101
  4. FLUOXETINE [Interacting]
     Route: 048
     Dates: start: 20090101
  5. PROVIGIL [Interacting]
     Indication: SOMNOLENCE
     Route: 048
     Dates: start: 20080501
  6. PROVIGIL [Interacting]
     Indication: NARCOLEPSY
     Route: 048
     Dates: start: 20080501
  7. PROVIGIL [Interacting]
     Route: 048
  8. PROVIGIL [Interacting]
     Route: 048
  9. RISPERIDONE [Concomitant]
     Indication: OBSESSIVE-COMPULSIVE DISORDER
     Dates: start: 20000101

REACTIONS (6)
  - CONDITION AGGRAVATED [None]
  - DRUG INTERACTION [None]
  - OBSESSIVE-COMPULSIVE DISORDER [None]
  - THERAPEUTIC RESPONSE DECREASED [None]
  - TIC [None]
  - TOURETTE'S DISORDER [None]
